FAERS Safety Report 8134190-4 (Version None)
Quarter: 2012Q1

REPORT INFORMATION
  Report Type: 
  Country: None (occurrence: None)
  Receive Date: 20120214
  Receipt Date: 20120206
  Transmission Date: 20120608
  Serious: Yes (Hospitalization)
  Sender: FDA-Public Use
  Company Number: US-BAYER-201016246NA

PATIENT
  Age: 37 Year
  Sex: Female
  Weight: 55.873 kg

DRUGS (5)
  1. LOVENOX [Concomitant]
     Dosage: 100 MG (DAILY DOSE), BID,
  2. COUMADIN [Concomitant]
  3. YASMIN [Suspect]
     Indication: PREMENSTRUAL SYNDROME
  4. IRON [Concomitant]
  5. YASMIN [Suspect]
     Indication: CONTRACEPTION
     Route: 048
     Dates: start: 20070101, end: 20080310

REACTIONS (9)
  - CHEST DISCOMFORT [None]
  - MENORRHAGIA [None]
  - PULMONARY EMBOLISM [None]
  - CHEST PAIN [None]
  - PYREXIA [None]
  - LEUKOPENIA [None]
  - SYNCOPE [None]
  - DYSPNOEA [None]
  - TACHYCARDIA [None]
